FAERS Safety Report 9257357 (Version 1)
Quarter: 2013Q2

REPORT INFORMATION
  Report Type: Spontaneous
  Country: US (occurrence: None)
  Receive Date: 20130423
  Receipt Date: 20130423
  Transmission Date: 20140414
  Serious: Yes (Hospitalization, Other)
  Sender: FDA-Public Use
  Company Number: 2013-001101

PATIENT
  Age: 35 Year
  Sex: Female

DRUGS (4)
  1. DORYX [Suspect]
     Indication: ACNE CYSTIC
     Route: 048
     Dates: start: 20120912, end: 20130327
  2. MULTIVIT [Concomitant]
  3. TAZORAC [Concomitant]
  4. CLINDAMYCIN [Concomitant]

REACTIONS (20)
  - Platelet count decreased [None]
  - Oesophagitis [None]
  - Hypotension [None]
  - Blood iron decreased [None]
  - Urine output decreased [None]
  - Abnormal loss of weight [None]
  - Chromaturia [None]
  - Headache [None]
  - Dizziness [None]
  - Decreased appetite [None]
  - Arthralgia [None]
  - Non-cardiac chest pain [None]
  - Nausea [None]
  - Night sweats [None]
  - Pyrexia [None]
  - Syncope [None]
  - Vomiting [None]
  - Alopecia [None]
  - Urinary retention [None]
  - Haemolytic anaemia [None]
